FAERS Safety Report 5262281-4 (Version None)
Quarter: 2007Q1

REPORT INFORMATION
  Report Type: 
  Country: None (occurrence: None)
  Receive Date: 20070308
  Receipt Date: 20070308
  Transmission Date: 20070707
  Serious: Yes (Death)
  Sender: FDA-Public Use
  Company Number: None

PATIENT
  Age: 29 Year
  Sex: Female
  Weight: 56.6996 kg

DRUGS (1)
  1. CU-7 [Suspect]
     Indication: CAESAREAN SECTION
     Dosage: N/A
     Route: 015

REACTIONS (1)
  - IUCD COMPLICATION [None]
